FAERS Safety Report 13487926 (Version 1)
Quarter: 2017Q2

REPORT INFORMATION
  Report Type: Spontaneous
  Country: US (occurrence: US)
  Receive Date: 20170426
  Receipt Date: 20170426
  Transmission Date: 20170830
  Serious: No
  Sender: FDA-Public Use
  Company Number: US-ALKERMES INC.-ALK-2016-001829

PATIENT
  Age: 30 Year
  Sex: Female
  Weight: 63.49 kg

DRUGS (1)
  1. VIVITROL [Suspect]
     Active Substance: NALTREXONE
     Indication: DRUG USE DISORDER
     Dosage: 380 MG, QMO
     Route: 030
     Dates: start: 201602, end: 20160613

REACTIONS (2)
  - Human chorionic gonadotropin decreased [Unknown]
  - Pregnancy [Unknown]

NARRATIVE: CASE EVENT DATE: 201605
